FAERS Safety Report 9012615 (Version 1)
Quarter: 2013Q1

REPORT INFORMATION
  Report Type: Spontaneous
  Country: US (occurrence: US)
  Receive Date: 20130114
  Receipt Date: 20130114
  Transmission Date: 20140127
  Serious: Yes (Hospitalization, Other)
  Sender: FDA-Public Use
  Company Number: US-ELI_LILLY_AND_COMPANY-US201301002154

PATIENT
  Sex: Female

DRUGS (6)
  1. CYMBALTA [Suspect]
     Indication: DEPRESSION
     Dosage: 120 MG, QD
  2. CYMBALTA [Suspect]
     Dosage: 60 MG, QD
  3. SYNTHROID [Concomitant]
     Dosage: 300 MG, UNK
  4. SYNTHROID [Concomitant]
     Dosage: 200 MG, UNK
  5. KEFLEX                                  /UNK/ [Concomitant]
     Indication: URINARY TRACT INFECTION
     Dosage: 500 MG, UNK
  6. FISH OIL [Concomitant]

REACTIONS (8)
  - Drug level increased [Recovered/Resolved]
  - Aggression [Recovered/Resolved]
  - Hallucination [Recovered/Resolved]
  - Paranoia [Recovered/Resolved]
  - Depressed mood [Recovered/Resolved]
  - Accidental overdose [Recovered/Resolved]
  - Urinary tract infection [Unknown]
  - Memory impairment [Unknown]
